FAERS Safety Report 5141656-8 (Version None)
Quarter: 2006Q4

REPORT INFORMATION
  Report Type: 
  Country: None (occurrence: None)
  Receive Date: 20061030
  Receipt Date: 20061030
  Transmission Date: 20070319
  Serious: No
  Sender: FDA-Public Use
  Company Number: None

PATIENT
  Age: 65 Year
  Sex: Female
  Weight: 50.3493 kg

DRUGS (5)
  1. AXERT [Suspect]
     Indication: MIGRAINE
     Dosage: 12.5  BID PO
     Route: 048
     Dates: start: 20020101, end: 20061010
  2. LEXAPRO [Suspect]
     Indication: DEPRESSION
     Dosage: 15 MG Q DAY PO
     Route: 048
     Dates: start: 20020101, end: 20061010
  3. CLIMARA [Concomitant]
  4. SYNTHROID [Concomitant]
  5. VICOPROFEN [Concomitant]

REACTIONS (8)
  - AMNESIA [None]
  - CEREBELLAR ATAXIA [None]
  - CONFUSIONAL STATE [None]
  - COORDINATION ABNORMAL [None]
  - DEPRESSED LEVEL OF CONSCIOUSNESS [None]
  - MIGRAINE [None]
  - SOMNOLENCE [None]
  - TREMOR [None]
